FAERS Safety Report 4764337-9 (Version None)
Quarter: 2005Q3

REPORT INFORMATION
  Report Type: 
  Country: None (occurrence: None)
  Receive Date: 20050907
  Receipt Date: 20050902
  Transmission Date: 20060218
  Serious: Yes (Hospitalization)
  Sender: FDA-Public Use
  Company Number: 200510325BFR

PATIENT
  Age: 32 Year
  Sex: Male

DRUGS (3)
  1. MOXIFLOXACIN HYDROCHLORIDE [Suspect]
     Indication: SINUSITIS
     Dosage: SEE IMAGE
  2. DERINOX [Concomitant]
  3. EFFERALGAN [Concomitant]

REACTIONS (4)
  - ARRHYTHMIA [None]
  - FATIGUE [None]
  - MALAISE [None]
  - PALPITATIONS [None]
